FAERS Safety Report 9894190 (Version 5)
Quarter: 2014Q3

REPORT INFORMATION
  Report Type: Spontaneous
  Country: US (occurrence: US)
  Receive Date: 20140213
  Receipt Date: 20140925
  Transmission Date: 20150326
  Serious: Yes (Other)
  Sender: FDA-Public Use
  Company Number: US-BRISTOL-MYERS SQUIBB COMPANY-19898048

PATIENT
  Age: 74 Year
  Sex: Female

DRUGS (1)
  1. SPRYCEL [Suspect]
     Active Substance: DASATINIB
     Indication: CHRONIC MYELOID LEUKAEMIA
     Dosage: 70 MG STARTED IN 31JAN-2014?LOT NO:3M55001B
     Route: 048
     Dates: start: 20131201

REACTIONS (5)
  - Hepatomegaly [Unknown]
  - Acne [Recovering/Resolving]
  - Insomnia [Recovering/Resolving]
  - Diarrhoea [Unknown]
  - Dermatitis acneiform [Unknown]

NARRATIVE: CASE EVENT DATE: 201312
